FAERS Safety Report 5315696-X (Version None)
Quarter: 2007Q2

REPORT INFORMATION
  Report Type: 
  Country: None (occurrence: None)
  Receive Date: 20070503
  Receipt Date: 20070430
  Transmission Date: 20071010
  Serious: Yes (Disabling)
  Sender: FDA-Public Use
  Company Number: US-MERCK-0705USA00052

PATIENT
  Age: 58 Year
  Sex: Female

DRUGS (5)
  1. JANUVIA [Suspect]
     Indication: DIABETES MELLITUS NON-INSULIN-DEPENDENT
     Route: 048
     Dates: start: 20070425
  2. ATENOLOL [Concomitant]
     Route: 065
  3. NEURONTIN [Concomitant]
     Route: 065
  4. MAXZIDE [Concomitant]
     Route: 065
  5. ASPIRIN [Concomitant]
     Route: 065

REACTIONS (2)
  - BLOOD GLUCOSE ABNORMAL [None]
  - HEADACHE [None]
